FAERS Safety Report 9171622 (Version 1)
Quarter: 2013Q1

REPORT INFORMATION
  Report Type: Spontaneous
  Country: GB (occurrence: GB)
  Receive Date: 20130319
  Receipt Date: 20130319
  Transmission Date: 20140127
  Serious: Yes (Other)
  Sender: FDA-Public Use
  Company Number: GB-GLAXOSMITHKLINE-B0873877A

PATIENT
  Age: 33 Year
  Sex: Male

DRUGS (3)
  1. TROBALT [Suspect]
     Indication: EPILEPSY
     Route: 048
     Dates: start: 2012
  2. TOPIRAMATE [Concomitant]
  3. CLOBAZAM [Concomitant]

REACTIONS (4)
  - Convulsion [Unknown]
  - Drug intolerance [Unknown]
  - Blood urine present [Unknown]
  - Haematospermia [Unknown]
